FAERS Safety Report 21484573 (Version 1)
Quarter: 2022Q4

REPORT INFORMATION
  Report Type: Spontaneous
  Country: FR (occurrence: FR)
  Receive Date: 20221020
  Receipt Date: 20221020
  Transmission Date: 20230113
  Serious: Yes (Hospitalization)
  Sender: FDA-Public Use
  Company Number: None

PATIENT
  Age: 51 Year
  Sex: Male
  Weight: 83.5 kg

DRUGS (6)
  1. OLANZAPINE [Interacting]
     Active Substance: OLANZAPINE
     Indication: Product used for unknown indication
     Dosage: 10 MILLIGRAM DAILY; 1 TAB OF 10MG AT 6 P.M.
  2. DIAZEPAM [Interacting]
     Active Substance: DIAZEPAM
     Indication: Psychotic disorder
     Dosage: 40 MILLIGRAM DAILY; 2 TABS OF 10MG, I.E. 20MG, AT 8 A.M. 1 TAB OF 10MG AT 12 NOON. 1 TAB OF 10MG AT
  3. TROPATEPINE HYDROCHLORIDE [Interacting]
     Active Substance: TROPATEPINE HYDROCHLORIDE
     Indication: Product used for unknown indication
     Dosage: 20 MILLIGRAM DAILY; 1 TAB OF 10MG AT 8 A.M. AND 6 P.M.;LEPTICUR 10 MG,
  4. LOXAPINE [Interacting]
     Active Substance: LOXAPINE
     Indication: Psychotic disorder
     Dosage: 25MG, OR 25 DROPS, PER DAY. +25MG SB. +30MG AT BEDTIME SB.; UNIT DOSE: 25MG
  5. CYAMEMAZINE [Interacting]
     Active Substance: CYAMEMAZINE
     Indication: Psychotic disorder
     Dosage: 360 MILLIGRAM DAILY; 120MG IN THE MORNING (=120 DROPS). 120MG AT NOON. 120MG IN THE EVENING. + 50MG
  6. TRIMEPRAZINE [Interacting]
     Active Substance: TRIMEPRAZINE
     Indication: Product used for unknown indication
     Dosage: 20 MILLIGRAM DAILY; 20MG, I.E. 4CP, AT 10 P.M..; THERALENE 5 MG, SCORED FILM-COATED TABLET

REACTIONS (4)
  - Altered state of consciousness [Recovered/Resolved]
  - Dyspnoea [Recovered/Resolved]
  - Somnolence [Recovered/Resolved]
  - Drug interaction [Unknown]

NARRATIVE: CASE EVENT DATE: 20220904
